FAERS Safety Report 8556932-6 (Version None)
Quarter: 2012Q3

REPORT INFORMATION
  Report Type: 
  Country: None (occurrence: None)
  Receive Date: 20120801
  Receipt Date: 20120724
  Transmission Date: 20120928
  Serious: Yes (Death)
  Sender: FDA-Public Use
  Company Number: ID-BAYER-2012-073634

PATIENT
  Sex: Male

DRUGS (1)
  1. NEXAVAR [Suspect]
     Indication: HEPATIC NEOPLASM MALIGNANT
     Dosage: 400 MG, TOTAL DAILY DOSAGE
     Route: 048
     Dates: start: 20120701, end: 20120701

REACTIONS (1)
  - DEATH [None]
